FAERS Safety Report 8079530-X (Version None)
Quarter: 2012Q1

REPORT INFORMATION
  Report Type: 
  Country: None (occurrence: None)
  Receive Date: 20120128
  Receipt Date: 20110826
  Transmission Date: 20120608
  Serious: No
  Sender: FDA-Public Use
  Company Number: US-ABBOTT-11P-163-0850243-00

PATIENT
  Weight: 68.1 kg

DRUGS (10)
  1. LORTAB [Concomitant]
     Indication: ARTHRALGIA
  2. VITAMIN E [Concomitant]
     Indication: VITAMIN SUPPLEMENTATION
  3. HUMIRA [Suspect]
     Indication: RHEUMATOID ARTHRITIS
     Dosage: ABOUT EVERY THREE WEEKS
     Dates: start: 20110101, end: 20110101
  4. HYZAAR [Concomitant]
     Indication: HYPERTENSION
  5. SYNTHROID [Concomitant]
     Indication: HYPOTHYROIDISM
  6. CLARITIN [Concomitant]
     Indication: SEASONAL ALLERGY
  7. ASCORBIC ACID [Concomitant]
     Indication: VITAMIN SUPPLEMENTATION
  8. PREDNISONE TAB [Concomitant]
     Indication: PRODUCT USED FOR UNKNOWN INDICATION
  9. VITAMIN A [Concomitant]
     Indication: VITAMIN SUPPLEMENTATION
  10. PLAQUENIL [Concomitant]
     Indication: RHEUMATOID ARTHRITIS

REACTIONS (2)
  - HEADACHE [None]
  - HYPERTENSION [None]
